FAERS Safety Report 14843446 (Version 2)
Quarter: 2018Q2

REPORT INFORMATION
  Report Type: Spontaneous
  Country: JP (occurrence: JP)
  Receive Date: 20180503
  Receipt Date: 20180510
  Transmission Date: 20180711
  Serious: Yes (Other)
  Sender: FDA-Public Use
  Company Number: JP-PFIZER INC-2018179933

PATIENT
  Age: 63 Year
  Sex: Male

DRUGS (4)
  1. CISPLATIN. [Suspect]
     Active Substance: CISPLATIN
     Indication: SQUAMOUS CELL CARCINOMA
     Dosage: 175 MG/M2, SLOW BOLUS OVER 1 H THROUGH THE INTRA-ARTERIAL CATHETER
     Route: 013
  2. CETUXIMAB. [Suspect]
     Active Substance: CETUXIMAB
     Indication: SQUAMOUS CELL CARCINOMA
     Dosage: 400 MG/M2, 1 CYCLIC
     Route: 041
  3. DOCETAXEL. [Suspect]
     Active Substance: DOCETAXEL
     Indication: SQUAMOUS CELL CARCINOMA
     Dosage: 70 MG/M2, SLOW BOLUS OVER 1 H THROUGH THE INTRA-ARTERIAL CATHETER
     Route: 013
  4. CETUXIMAB. [Suspect]
     Active Substance: CETUXIMAB
     Dosage: 250 MG/M2, WEEKLY (1 WEEK)
     Route: 041

REACTIONS (5)
  - Dermatitis acneiform [Unknown]
  - Dermatitis [Unknown]
  - Paronychia [Unknown]
  - Stomatitis [Unknown]
  - Neutropenia [Unknown]
